FAERS Safety Report 21241092 (Version 1)
Quarter: 2022Q3

REPORT INFORMATION
  Report Type: Spontaneous
  Country: CA (occurrence: CA)
  Receive Date: 20220823
  Receipt Date: 20220823
  Transmission Date: 20221027
  Serious: Yes (Other)
  Sender: FDA-Public Use
  Company Number: CA-TEVA-2022-CA-2066381

PATIENT
  Sex: Female

DRUGS (1)
  1. CIPROFLOXACIN [Suspect]
     Active Substance: CIPROFLOXACIN
     Indication: Abdominal infection

REACTIONS (5)
  - Arthralgia [Unknown]
  - Mobility decreased [Unknown]
  - Neck pain [Unknown]
  - Pain in extremity [Unknown]
  - Tendon pain [Unknown]
